FAERS Safety Report 25610694 (Version 2)
Quarter: 2025Q3

REPORT INFORMATION
  Report Type: Report from Study
  Country: EU (occurrence: EU)
  Receive Date: 20250728
  Receipt Date: 20250918
  Transmission Date: 20251020
  Serious: Yes (Other)
  Sender: ROCHE
  Company Number: EU-ROCHE-10000344436

PATIENT

DRUGS (12)
  1. RITUXIMAB [Suspect]
     Active Substance: RITUXIMAB
     Indication: Urticarial vasculitis
     Route: 042
  2. OMALIZUMAB [Suspect]
     Active Substance: OMALIZUMAB
     Indication: Urticarial vasculitis
     Route: 058
  3. CANAKINUMAB [Suspect]
     Active Substance: CANAKINUMAB
     Indication: Urticarial vasculitis
     Route: 042
  4. ANAKINRA [Concomitant]
     Active Substance: ANAKINRA
     Indication: Urticarial vasculitis
  5. HYDROXYCHLOROQUINE [Concomitant]
     Active Substance: HYDROXYCHLOROQUINE
  6. COLCHICINE [Concomitant]
     Active Substance: COLCHICINE
  7. METHOTREXATE [Concomitant]
     Active Substance: METHOTREXATE
  8. AZATHIOPRINE [Concomitant]
     Active Substance: AZATHIOPRINE
  9. DAPSONE [Concomitant]
     Active Substance: DAPSONE
  10. CYCLOPHOSPHAMIDE [Concomitant]
     Active Substance: CYCLOPHOSPHAMIDE
  11. CYCLOSPORINE [Concomitant]
     Active Substance: CYCLOSPORINE
  12. MYCOPHENOLATE MOFETIL [Concomitant]
     Active Substance: MYCOPHENOLATE MOFETIL

REACTIONS (12)
  - Musculoskeletal disorder [Unknown]
  - Eye inflammation [Unknown]
  - Gastrointestinal disorder [Unknown]
  - Respiratory disorder [Unknown]
  - Arthralgia [Unknown]
  - Arthritis [Unknown]
  - Myalgia [Unknown]
  - Glomerulonephritis [Unknown]
  - Pneumonia [Unknown]
  - Infection [Unknown]
  - Glomerulonephritis membranous [Unknown]
  - Sepsis [Unknown]
